FAERS Safety Report 23580150 (Version 1)
Quarter: 2024Q1

REPORT INFORMATION
  Report Type: Spontaneous
  Country: US (occurrence: None)
  Receive Date: 20240228
  Receipt Date: 20240228
  Transmission Date: 20240410
  Serious: Yes (Life-Threatening, Hospitalization, Disabling, Other)
  Sender: FDA-Public Use
  Company Number: None

PATIENT
  Sex: Female

DRUGS (1)
  1. CYTOTEC [Suspect]
     Active Substance: MISOPROSTOL

REACTIONS (11)
  - Exposure during pregnancy [None]
  - Off label use [None]
  - Maternal drugs affecting foetus [None]
  - Uterine hypertonus [None]
  - Drug effect faster than expected [None]
  - Foetal heart rate deceleration abnormality [None]
  - Neonatal respiratory arrest [None]
  - Cardiac arrest neonatal [None]
  - Neonatal hypoxia [None]
  - Precipitate labour [None]
  - Product use complaint [None]

NARRATIVE: CASE EVENT DATE: 20240128
